FAERS Safety Report 23061521 (Version 1)
Quarter: 2023Q4

REPORT INFORMATION
  Report Type: Spontaneous
  Country: US (occurrence: US)
  Receive Date: 20231013
  Receipt Date: 20231013
  Transmission Date: 20240110
  Serious: Yes (Other)
  Sender: FDA-Public Use
  Company Number: US-APELLIS PHARMACEUTICALS-APL-2023-003092

PATIENT
  Age: 64 Year
  Sex: Male

DRUGS (5)
  1. SYFOVRE [Suspect]
     Active Substance: PEGCETACOPLAN
     Indication: Dry age-related macular degeneration
     Dosage: OD (FIRST DOSE)
     Dates: start: 20230608, end: 20230608
  2. SYFOVRE [Suspect]
     Active Substance: PEGCETACOPLAN
     Dosage: OD (SECOND DOSE)
     Dates: start: 20230713, end: 20230713
  3. SYFOVRE [Suspect]
     Active Substance: PEGCETACOPLAN
     Dosage: OD (THIRD DOSE)
     Dates: start: 20230907, end: 20230907
  4. SYFOVRE [Suspect]
     Active Substance: PEGCETACOPLAN
     Dosage: OS (FIRST DOSE)
     Dates: start: 20230713, end: 20230713
  5. SYFOVRE [Suspect]
     Active Substance: PEGCETACOPLAN
     Dosage: OS (SECOND DOSE)
     Dates: start: 20230907, end: 20230907

REACTIONS (3)
  - Cataract [Not Recovered/Not Resolved]
  - Vision blurred [Not Recovered/Not Resolved]
  - Vision blurred [Recovered/Resolved]

NARRATIVE: CASE EVENT DATE: 20230608
